FAERS Safety Report 8969468 (Version 1)
Quarter: 2012Q4

REPORT INFORMATION
  Report Type: 
  Country: DE (occurrence: DE)
  Receive Date: 20121218
  Receipt Date: 20121218
  Transmission Date: 20130627
  Serious: Yes (Hospitalization, Congenital Anomaly, Other)
  Sender: FDA-Public Use
  Company Number: DE-ELI_LILLY_AND_COMPANY-DE201212002497

PATIENT
  Age: 0 Year
  Weight: 2.8 kg

DRUGS (12)
  1. ZYPREXA [Suspect]
     Dosage: 10 mg, qd
     Route: 064
  2. ZYPREXA [Suspect]
     Dosage: 10 mg, qd
     Route: 064
  3. ZYPREXA [Suspect]
     Dosage: 10 mg, qd
     Route: 064
  4. ZYPREXA [Suspect]
     Dosage: 10 mg, qd
     Route: 064
  5. NOCTAMID [Concomitant]
     Indication: PSYCHOTIC DISORDER
     Dosage: 0.5 mg, prn
     Route: 064
  6. NOCTAMID [Concomitant]
     Indication: PSYCHOTIC DISORDER
     Dosage: 0.5 mg, prn
     Route: 064
  7. ALPRAZOLAM [Concomitant]
     Indication: PSYCHOTIC DISORDER
     Dosage: UNK
     Route: 064
  8. ALPRAZOLAM [Concomitant]
     Indication: PSYCHOTIC DISORDER
     Dosage: UNK
     Route: 064
  9. FOLIC ACID [Concomitant]
     Indication: PROPHYLAXIS OF NEURAL TUBE DEFECT
     Dosage: 0.8 mg, qd
     Route: 064
  10. FOLIC ACID [Concomitant]
     Indication: PROPHYLAXIS OF NEURAL TUBE DEFECT
     Dosage: 0.8 mg, qd
     Route: 064
  11. IODINE [Concomitant]
     Route: 064
  12. IODINE [Concomitant]
     Route: 064

REACTIONS (14)
  - Anorectal disorder [Not Recovered/Not Resolved]
  - Feeding disorder neonatal [Recovered/Resolved]
  - Micrognathia [Unknown]
  - Hypotonia neonatal [Not Recovered/Not Resolved]
  - Floppy infant [Recovered/Resolved]
  - Coordination abnormal [Not Recovered/Not Resolved]
  - Unevaluable event [Not Recovered/Not Resolved]
  - Low set ears [Not Recovered/Not Resolved]
  - Haemangioma congenital [Not Recovered/Not Resolved]
  - Lactic acidosis [Recovered/Resolved]
  - Hypoglycaemia neonatal [Recovered/Resolved]
  - Oedema neonatal [Unknown]
  - Small for dates baby [Unknown]
  - Foetal exposure during pregnancy [Recovered/Resolved]
